FAERS Safety Report 4746666-8 (Version None)
Quarter: 2005Q3

REPORT INFORMATION
  Report Type: 
  Country: None (occurrence: None)
  Receive Date: 20050815
  Receipt Date: 20050803
  Transmission Date: 20060218
  Serious: Yes (Other)
  Sender: FDA-Public Use
  Company Number: 11964

PATIENT
  Age: 53 Year
  Sex: Female

DRUGS (1)
  1. PACLITAXEL [Suspect]
     Indication: NEOPLASM MALIGNANT
     Dosage: 128 MG ONCE IV
     Route: 042

REACTIONS (3)
  - CHEST DISCOMFORT [None]
  - DYSPNOEA [None]
  - FLUSHING [None]
